FAERS Safety Report 19836477 (Version 1)
Quarter: 2021Q3

REPORT INFORMATION
  Report Type: Spontaneous
  Country: US (occurrence: US)
  Receive Date: 20210915
  Receipt Date: 20210915
  Transmission Date: 20211014
  Serious: No
  Sender: FDA-Public Use
  Company Number: US-BIOHAVEN PHARMACEUTICALS-2021BHV00825

PATIENT
  Age: 23 Year
  Sex: Female
  Weight: 54.42 kg

DRUGS (10)
  1. KEPPRA [Concomitant]
     Active Substance: LEVETIRACETAM
  2. CALCIUM WITH VITAMIN D [Concomitant]
     Active Substance: CALCIUM\VITAMIN D
  3. NURTEC ODT [Suspect]
     Active Substance: RIMEGEPANT SULFATE
     Indication: MIGRAINE
     Dosage: 75 MG, 1X/DAY, AS NEEDED
     Route: 048
     Dates: start: 20210421, end: 2021
  4. NURTEC ODT [Suspect]
     Active Substance: RIMEGEPANT SULFATE
     Dosage: 75 MG, EVERY 48 HOURS (EVERY OTHER DAY)
     Route: 048
     Dates: start: 20210621, end: 20210628
  5. TIZANIDINE. [Concomitant]
     Active Substance: TIZANIDINE
  6. MELATONIN [Concomitant]
     Active Substance: MELATONIN
  7. METOPROLOL XR [Concomitant]
     Active Substance: METOPROLOL SUCCINATE
  8. NORETHINDRONE. [Concomitant]
     Active Substance: NORETHINDRONE
  9. FOLIC ACID. [Concomitant]
     Active Substance: FOLIC ACID
  10. NALTREXONE [Concomitant]
     Active Substance: NALTREXONE
     Dosage: 4.5 MG, 1X/DAY

REACTIONS (6)
  - Feeling abnormal [Recovering/Resolving]
  - Neck pain [Not Recovered/Not Resolved]
  - Tension headache [Recovering/Resolving]
  - Drug ineffective [Recovered/Resolved]
  - Fatigue [Recovering/Resolving]
  - Headache [Recovering/Resolving]

NARRATIVE: CASE EVENT DATE: 20210421
